FAERS Safety Report 17700355 (Version 1)
Quarter: 2020Q2

REPORT INFORMATION
  Report Type: Spontaneous
  Country: US (occurrence: US)
  Receive Date: 20200423
  Receipt Date: 20200423
  Transmission Date: 20200714
  Serious: No
  Sender: FDA-Public Use
  Company Number: US-ASTRAZENECA-2020SE53329

PATIENT
  Age: 25092 Day
  Sex: Female
  Weight: 59.4 kg

DRUGS (2)
  1. SYMBICORT [Suspect]
     Active Substance: BUDESONIDE\FORMOTEROL FUMARATE DIHYDRATE
     Indication: ASTHMA
     Dosage: 160/4.5 TWICE EVERY DAY
     Route: 055
     Dates: start: 201901
  2. SYMBICORT [Suspect]
     Active Substance: BUDESONIDE\FORMOTEROL FUMARATE DIHYDRATE
     Indication: ASTHMA
     Dosage: 160/4.5 TWICE EVERY DAY
     Route: 055

REACTIONS (5)
  - Dyspnoea [Recovered/Resolved]
  - Discomfort [Recovered/Resolved]
  - Breath sounds abnormal [Recovered/Resolved]
  - Device issue [Unknown]
  - Circumstance or information capable of leading to device use error [Unknown]

NARRATIVE: CASE EVENT DATE: 20200409
